FAERS Safety Report 9728365 (Version 2)
Quarter: 2013Q4

REPORT INFORMATION
  Report Type: Spontaneous
  Country: US (occurrence: US)
  Receive Date: 20131204
  Receipt Date: 20131213
  Transmission Date: 20140711
  Serious: No
  Sender: FDA-Public Use
  Company Number: US-BAYER-2013-142783

PATIENT
  Age: 59 Year
  Sex: Male

DRUGS (6)
  1. LEVITRA [Suspect]
     Indication: PROSTATE CANCER
     Dosage: 20 MG, UNK
     Route: 048
     Dates: start: 201310
  2. LEVITRA [Suspect]
     Indication: PROSTATOMEGALY
  3. GLIPIZIDE [Concomitant]
  4. METFORMIN [Concomitant]
  5. JANUVIA [Concomitant]
  6. OMEPRAZOLE [Concomitant]

REACTIONS (2)
  - Off label use [None]
  - Wrong technique in drug usage process [None]
